FAERS Safety Report 4352416-X (Version None)
Quarter: 2004Q2

REPORT INFORMATION
  Report Type: 
  Country: None (occurrence: None)
  Receive Date: 20040428
  Receipt Date: 20040419
  Transmission Date: 20050107
  Serious: Yes (Hospitalization)
  Sender: FDA-Public Use
  Company Number: 2004CG00756

PATIENT
  Age: 61 Year
  Sex: Female
  Weight: 53 kg

DRUGS (3)
  1. INEXIUM [Suspect]
     Dosage: 20 MG DAILY PO
     Route: 048
     Dates: start: 20040301, end: 20040310
  2. FELDENE [Suspect]
     Dosage: 20 MG QD PO
     Route: 048
     Dates: start: 20040301, end: 20040310
  3. ACETAMINOPHEN W/ PROPOXYPHENE HCL [Concomitant]

REACTIONS (4)
  - C-REACTIVE PROTEIN INCREASED [None]
  - MOUTH ULCERATION [None]
  - PARAESTHESIA [None]
  - PURPURA [None]
